FAERS Safety Report 9850277 (Version 3)
Quarter: 2014Q4

REPORT INFORMATION
  Report Type: Report from Study
  Country: FR (occurrence: FR)
  Receive Date: 20140128
  Receipt Date: 20141208
  Transmission Date: 20150529
  Serious: Yes (Hospitalization)
  Sender: FDA-Public Use
  Company Number: FR-GLAXOSMITHKLINE-B0959394B

PATIENT
  Age: 61 Year
  Sex: Female
  Weight: 66.5 kg

DRUGS (20)
  1. MOVICOL [Concomitant]
     Active Substance: POLYETHYLENE GLYCOL 3350\POTASSIUM CHLORIDE\SODIUM BICARBONATE\SODIUM CHLORIDE
     Indication: CONSTIPATION
  2. VERSATIS [Concomitant]
     Active Substance: LIDOCAINE
  3. PAZOPANIB [Suspect]
     Active Substance: PAZOPANIB
     Indication: SALIVARY GLAND CANCER
     Dosage: 800 MG, 1D
     Route: 048
     Dates: start: 20131218, end: 20140101
  4. IMODIUM [Concomitant]
     Active Substance: LOPERAMIDE HYDROCHLORIDE
  5. OXYCONTIN [Concomitant]
     Active Substance: OXYCODONE HYDROCHLORIDE
  6. LYRICA [Concomitant]
     Active Substance: PREGABALIN
  7. ZOLPIDEM [Concomitant]
     Active Substance: ZOLPIDEM\ZOLPIDEM TARTRATE
  8. VOGALENE [Concomitant]
     Active Substance: METOPIMAZINE
  9. XYZALL [Concomitant]
     Active Substance: LEVOCETIRIZINE DIHYDROCHLORIDE
  10. ESOMEPRAZOLE [Concomitant]
     Active Substance: ESOMEPRAZOLE
  11. SPASFON LYOC [Concomitant]
     Active Substance: PHLOROGLUCINOL
     Route: 048
  12. CORTANCYL [Concomitant]
     Active Substance: PREDNISONE
  13. FUNGIZONE [Concomitant]
     Active Substance: AMPHOTERICIN B
  14. DICETEL [Concomitant]
     Active Substance: PINAVERIUM BROMIDE
  15. DAFALGAN [Concomitant]
     Active Substance: ACETAMINOPHEN
  16. EDUCTYL [Concomitant]
     Active Substance: POTASSIUM BITARTRATE\SODIUM BICARBONATE
  17. PAZOPANIB [Suspect]
     Active Substance: PAZOPANIB
     Dosage: UNK
     Dates: start: 20140115
  18. SEROPLEX [Concomitant]
     Active Substance: ESCITALOPRAM OXALATE
  19. LYSANXIA [Concomitant]
     Active Substance: PRAZEPAM
  20. INEXIUM [Concomitant]
     Active Substance: ESOMEPRAZOLE

REACTIONS (1)
  - Skin erosion [Recovered/Resolved]

NARRATIVE: CASE EVENT DATE: 20140102
